FAERS Safety Report 26192581 (Version 1)
Quarter: 2025Q4

REPORT INFORMATION
  Report Type: Spontaneous
  Country: JP (occurrence: JP)
  Receive Date: 20251223
  Receipt Date: 20251223
  Transmission Date: 20260118
  Serious: Yes (Other)
  Sender: GUERBET
  Company Number: JP-GUERBETG_JAPAN-JP-20250202

PATIENT
  Age: 72 Year
  Sex: Female
  Weight: 41 kg

DRUGS (6)
  1. LIPIODOL [Suspect]
     Active Substance: ETHIODIZED OIL
     Indication: Lymphangiogram
     Route: 027
  2. LIPIODOL [Suspect]
     Active Substance: ETHIODIZED OIL
     Indication: Therapeutic embolisation
     Dosage: A 1:4 MIXTURE OF NBCA AND LIPIODOL
     Route: 027
  3. ENBUCRILATE [Suspect]
     Active Substance: ENBUCRILATE
     Indication: Therapeutic embolisation
     Dosage: A 1:4 MIXTURE OF NBCA AND LIPIODOL
     Route: 027
  4. RIFAMPIN [Concomitant]
     Active Substance: RIFAMPIN
     Indication: Product used for unknown indication
  5. OCTREOTIDE ACETATE [Concomitant]
     Active Substance: OCTREOTIDE ACETATE
     Indication: Ascites
     Dosage: 300 MICROG/DAY
  6. etilephrine [Concomitant]
     Indication: Ascites

REACTIONS (2)
  - Ascites [Recovered/Resolved]
  - Off label use [Recovered/Resolved]
